FAERS Safety Report 9539184 (Version 1)
Quarter: 2013Q2

REPORT INFORMATION
  Report Type: Spontaneous
  Country: US (occurrence: None)
  Receive Date: 20130521
  Receipt Date: 20130521
  Transmission Date: 20140414
  Serious: No
  Sender: FDA-Public Use
  Company Number: 1000043158

PATIENT
  Age: 83 Year
  Sex: Male

DRUGS (7)
  1. TUDORZA PRESSAIR (ACLIDINIUM BROMIDE) (400 MICROGRAM, POWDER) [Suspect]
     Indication: CHRONIC OBSTRUCTIVE PULMONARY DISEASE
     Dosage: 400 MCG, 2 IN 1 D
     Route: 055
     Dates: start: 20130225
  2. DALIRESP [Concomitant]
  3. ALBUTEROL [Concomitant]
  4. TAMSULOSIN [Concomitant]
  5. IBUPROFEN [Concomitant]
  6. TRIGOSAMINE [Concomitant]
  7. OMEPRAZOLE [Concomitant]

REACTIONS (3)
  - Headache [None]
  - Cough [None]
  - Rhinorrhoea [None]
